FAERS Safety Report 6848370-9 (Version None)
Quarter: 2010Q3

REPORT INFORMATION
  Report Type: 
  Country: None (occurrence: None)
  Receive Date: 20100716
  Receipt Date: 20100707
  Transmission Date: 20110219
  Serious: Yes (Hospitalization)
  Sender: FDA-Public Use
  Company Number: JP-ROCHE-714547

PATIENT
  Sex: Female

DRUGS (6)
  1. CAPECITABINE [Suspect]
     Indication: COLON CANCER
     Route: 048
     Dates: start: 20090123, end: 20090216
  2. CAPECITABINE [Suspect]
     Route: 048
     Dates: start: 20090305, end: 20090318
  3. CAPECITABINE [Suspect]
     Route: 048
     Dates: start: 20090327, end: 20090409
  4. CAPECITABINE [Suspect]
     Route: 048
     Dates: start: 20090419, end: 20090502
  5. CAPECITABINE [Suspect]
     Route: 048
     Dates: start: 20090605, end: 20090607
  6. CAPECITABINE [Suspect]
     Route: 048
     Dates: start: 20090717, end: 20090730

REACTIONS (2)
  - CHOLECYSTITIS [None]
  - OVERDOSE [None]
